FAERS Safety Report 7357849-5 (Version None)
Quarter: 2011Q1

REPORT INFORMATION
  Report Type: 
  Country: None (occurrence: None)
  Receive Date: 20110317
  Receipt Date: 20110307
  Transmission Date: 20110831
  Serious: Yes (Other)
  Sender: FDA-Public Use
  Company Number: IE-AMGEN-IRLSP2011012834

PATIENT
  Age: 74 Year
  Sex: Male

DRUGS (2)
  1. ARANESP [Suspect]
     Indication: RENAL FAILURE CHRONIC
  2. ASPIRIN [Concomitant]

REACTIONS (7)
  - PAIN IN EXTREMITY [None]
  - DYSPNOEA [None]
  - MYOCARDIAL INFARCTION [None]
  - ASTHENIA [None]
  - HAEMOGLOBIN DECREASED [None]
  - VOMITING [None]
  - CHEST DISCOMFORT [None]
